FAERS Safety Report 8394753-8 (Version None)
Quarter: 2012Q1

REPORT INFORMATION
  Report Type: 
  Country: None (occurrence: None)
  Receive Date: 20120323
  Receipt Date: 20110531
  Transmission Date: 20120608
  Serious: Yes (Hospitalization)
  Sender: FDA-Public Use
  Company Number: 163-21880-11050390

PATIENT
  Age: 74 Year
  Sex: Male

DRUGS (7)
  1. ISOSORBIDE DINITRATE [Concomitant]
  2. VELCADE [Concomitant]
  3. FUROSEMIDE [Concomitant]
  4. ENALAPRIL MALEATE [Concomitant]
  5. METFORMIN HCL [Concomitant]
  6. REVLIMID [Suspect]
     Indication: AMYLOIDOSIS
     Dosage: 5 MG, 1 IN 1 D, PO
     Route: 048
     Dates: start: 20110317, end: 20110424
  7. CARVEDILOL [Concomitant]

REACTIONS (3)
  - DIZZINESS [None]
  - HYPOTENSION [None]
  - ASTHENIA [None]
